FAERS Safety Report 4417761-8 (Version None)
Quarter: 2004Q2

REPORT INFORMATION
  Report Type: 
  Country: None (occurrence: None)
  Receive Date: 20040621
  Receipt Date: 20040302
  Transmission Date: 20050107
  Serious: No
  Sender: FDA-Public Use
  Company Number: PHEH2004US02202

PATIENT
  Age: 57 Year
  Sex: Female
  Weight: 70.3 kg

DRUGS (2)
  1. ZOMETA [Suspect]
     Indication: METASTASES TO BONE
     Dosage: 4 MG EVERY 28 DAYS, INTRAVENOUS
     Route: 042
     Dates: start: 20011019, end: 20040116
  2. TAMOXIFEN CITRATE [Concomitant]

REACTIONS (2)
  - BONE DISORDER [None]
  - IMPAIRED HEALING [None]
